FAERS Safety Report 5181691-7 (Version None)
Quarter: 2006Q4

REPORT INFORMATION
  Report Type: 
  Country: None (occurrence: None)
  Receive Date: 20061220
  Receipt Date: 20060224
  Transmission Date: 20070319
  Serious: Yes (Other)
  Sender: FDA-Public Use
  Company Number: US-GLAXOSMITHKLINE-A0595032A

PATIENT
  Age: 43 Year
  Sex: Male

DRUGS (1)
  1. COMMIT [Suspect]
     Dosage: 4MG SEE DOSAGE TEXT
     Dates: end: 20060201

REACTIONS (4)
  - ANGER [None]
  - DEPRESSION [None]
  - DRUG ABUSER [None]
  - DRUG WITHDRAWAL SYNDROME [None]
